FAERS Safety Report 4396618-5 (Version None)
Quarter: 2004Q3

REPORT INFORMATION
  Report Type: 
  Country: None (occurrence: None)
  Receive Date: 20040713
  Receipt Date: 20040713
  Transmission Date: 20050211
  Serious: Yes (Hospitalization)
  Sender: FDA-Public Use
  Company Number: None

PATIENT
  Age: 9 Month
  Sex: Male
  Weight: 5.6 kg

DRUGS (1)
  1. SYNAGIS [Suspect]
     Indication: PREMATURE BABY
     Dosage: 15 MG/KG IM MONTHLY
     Route: 030
     Dates: start: 20031204

REACTIONS (5)
  - CRYING [None]
  - IRRITABILITY [None]
  - LOOSE STOOLS [None]
  - RASH ERYTHEMATOUS [None]
  - VOMITING [None]
